FAERS Safety Report 8958913 (Version 1)
Quarter: 2012Q4

REPORT INFORMATION
  Report Type: 
  Country: US (occurrence: US)
  Receive Date: 20121212
  Receipt Date: 20121212
  Transmission Date: 20130627
  Serious: No
  Sender: FDA-Public Use
  Company Number: US-009507513-1212USA001850

PATIENT
  Sex: Female

DRUGS (1)
  1. INVANZ [Suspect]
     Indication: SOFT TISSUE INFECTION
     Dosage: 1 g, Once
     Dates: start: 20121203

REACTIONS (2)
  - Nausea [Unknown]
  - Vomiting [Unknown]
